FAERS Safety Report 5821563-5 (Version None)
Quarter: 2008Q3

REPORT INFORMATION
  Report Type: 
  Country: None (occurrence: None)
  Receive Date: 20080724
  Receipt Date: 20080718
  Transmission Date: 20090109
  Serious: Yes (Other)
  Sender: FDA-Public Use
  Company Number: PHEH2008US06467

PATIENT
  Sex: Male

DRUGS (1)
  1. DIOVAN [Suspect]
     Dosage: 80 MG, QD

REACTIONS (3)
  - BLOOD PRESSURE FLUCTUATION [None]
  - HYPERTENSION [None]
  - HYPOTENSION [None]
